FAERS Safety Report 4280631-2 (Version None)
Quarter: 2004Q1

REPORT INFORMATION
  Report Type: 
  Country: None (occurrence: None)
  Receive Date: 20040127
  Receipt Date: 20040122
  Transmission Date: 20041129
  Serious: Yes (Life-Threatening, Hospitalization)
  Sender: FDA-Public Use
  Company Number: 2003UW16487

PATIENT
  Age: 66 Year
  Sex: Female
  Weight: 77.1115 kg

DRUGS (5)
  1. TOPROL-XL [Suspect]
     Indication: HYPERTENSION
     Dosage: 150 MG DAILY PO
     Route: 048
     Dates: start: 19961031, end: 20031201
  2. EPINEPHRINE [Suspect]
     Dosage: (1:1000) 0.4 CC
     Dates: start: 20030831
  3. HYDROCHLOROTHIAZIDE [Concomitant]
  4. LIPITOR [Concomitant]
  5. ESTROGEN PATCH [Concomitant]

REACTIONS (3)
  - ANGIONEUROTIC OEDEMA [None]
  - ARTHROPOD STING [None]
  - DRUG INEFFECTIVE [None]
